FAERS Safety Report 12071584 (Version 6)
Quarter: 2025Q3

REPORT INFORMATION
  Report Type: Spontaneous
  Country: EU (occurrence: EU)
  Receive Date: 20160212
  Receipt Date: 20250819
  Transmission Date: 20251020
  Serious: Yes (Hospitalization, Other)
  Sender: AUROBINDO
  Company Number: EU-AUROBINDO-AUR-APL-2016-01450

PATIENT
  Age: 64 Year
  Sex: Female

DRUGS (7)
  1. PREDNISOLONE [Interacting]
     Active Substance: PREDNISOLONE
     Indication: Kaposi^s sarcoma
     Route: 065
     Dates: start: 200209
  2. PREDNISOLONE [Interacting]
     Active Substance: PREDNISOLONE
     Indication: Immunosuppression
  3. TERBINAFINE [Interacting]
     Active Substance: TERBINAFINE
     Indication: Fungal skin infection
     Route: 065
  4. TERBINAFINE [Interacting]
     Active Substance: TERBINAFINE
     Route: 065
  5. TERBINAFINE [Interacting]
     Active Substance: TERBINAFINE
     Route: 061
  6. CYCLOSPORINE [Interacting]
     Active Substance: CYCLOSPORINE
     Indication: Kaposi^s sarcoma
     Dosage: 100 MILLIGRAM, ONCE A DAY (100 MG, QD)
     Route: 065
     Dates: start: 200209
  7. CYCLOSPORINE [Interacting]
     Active Substance: CYCLOSPORINE
     Indication: Immunosuppression

REACTIONS (4)
  - Renal impairment [Unknown]
  - Fungal infection [Recovered/Resolved]
  - Skin lesion [Recovering/Resolving]
  - Drug interaction [Unknown]

NARRATIVE: CASE EVENT DATE: 20020101
